FAERS Safety Report 18006175 (Version 1)
Quarter: 2020Q3

REPORT INFORMATION
  Report Type: Spontaneous
  Country: US (occurrence: US)
  Receive Date: 20200709
  Receipt Date: 20200709
  Transmission Date: 20201103
  Serious: Yes (Other)
  Sender: FDA-Public Use
  Company Number: None

PATIENT
  Sex: Female
  Weight: 52.16 kg

DRUGS (5)
  1. PROZAC [Concomitant]
     Active Substance: FLUOXETINE HYDROCHLORIDE
  2. PARAGARD T 380A [Suspect]
     Active Substance: COPPER
  3. PHENOBARBITAL. [Concomitant]
     Active Substance: PHENOBARBITAL
  4. KEPPRA [Concomitant]
     Active Substance: LEVETIRACETAM
  5. SYNTHROID [Concomitant]
     Active Substance: LEVOTHYROXINE SODIUM

REACTIONS (9)
  - Generalised anxiety disorder [None]
  - Depression [None]
  - Libido decreased [None]
  - Vulvovaginal mycotic infection [None]
  - Panic disorder [None]
  - Back pain [None]
  - Vulvovaginal dryness [None]
  - Ovulation pain [None]
  - Arthralgia [None]
